FAERS Safety Report 12783365 (Version 1)
Quarter: 2016Q3

REPORT INFORMATION
  Report Type: Spontaneous
  Country: US (occurrence: US)
  Receive Date: 20160926
  Receipt Date: 20160926
  Transmission Date: 20161109
  Serious: No
  Sender: FDA-Public Use
  Company Number: None

PATIENT
  Age: 53 Year
  Sex: Female
  Weight: 65.32 kg

DRUGS (1)
  1. KENALOG [Suspect]
     Active Substance: TRIAMCINOLONE ACETONIDE
     Indication: MUSCLE SPASMS
     Dosage: KENALOG 40 MG - DR INJECTED 4 SPOTS IN MY BACK (INJECTED BY DR.)

REACTIONS (10)
  - Mental disorder [None]
  - Dizziness [None]
  - Muscle spasms [None]
  - Seizure [None]
  - Palpitations [None]
  - Dysphemia [None]
  - Tremor [None]
  - Cold sweat [None]
  - Confusional state [None]
  - Feeling drunk [None]

NARRATIVE: CASE EVENT DATE: 20160828
